FAERS Safety Report 6930046-0 (Version None)
Quarter: 2010Q3

REPORT INFORMATION
  Report Type: 
  Country: None (occurrence: None)
  Receive Date: 20100818
  Receipt Date: 20100812
  Transmission Date: 20110219
  Serious: Yes (Other)
  Sender: FDA-Public Use
  Company Number: BR-SANOFI-AVENTIS-2010SA035322

PATIENT
  Sex: Male
  Weight: 65 kg

DRUGS (11)
  1. LANTUS [Suspect]
     Indication: TYPE 2 DIABETES MELLITUS
     Route: 058
     Dates: end: 20100501
  2. LANTUS [Suspect]
     Route: 058
     Dates: start: 20100601
  3. OPTIPEN [Suspect]
     Dates: end: 20100501
  4. OPTIPEN [Suspect]
     Dates: start: 20100601
  5. LANTUS [Suspect]
     Indication: TYPE 2 DIABETES MELLITUS
     Route: 058
     Dates: start: 20100501, end: 20100601
  6. SOLOSTAR [Suspect]
     Dates: start: 20100501, end: 20100601
  7. DIAMICRON [Concomitant]
     Indication: TYPE 2 DIABETES MELLITUS
     Route: 048
  8. SIMVASTATIN [Concomitant]
     Route: 048
  9. HYDROCHLOROTHIAZIDE/LOSARTAN POTASSIUM [Concomitant]
     Route: 048
  10. MONOCORDIL [Concomitant]
     Route: 048
  11. CARVEDILOL [Concomitant]
     Route: 048

REACTIONS (2)
  - CORONARY ARTERY OCCLUSION [None]
  - HYPERGLYCAEMIA [None]
